FAERS Safety Report 20521321 (Version 1)
Quarter: 2022Q1

REPORT INFORMATION
  Report Type: Spontaneous
  Country: US (occurrence: US)
  Receive Date: 20220226
  Receipt Date: 20220226
  Transmission Date: 20220423
  Serious: Yes (Other)
  Sender: FDA-Public Use
  Company Number: US-GILEAD-2022-0570829

PATIENT
  Age: 77 Year
  Sex: Male
  Weight: 94.1 kg

DRUGS (1)
  1. YESCARTA [Suspect]
     Active Substance: AXICABTAGENE CILOLEUCEL
     Indication: Diffuse large B-cell lymphoma
     Dosage: UNK
     Route: 042
     Dates: start: 20211221, end: 20211221

REACTIONS (18)
  - Immune effector cell-associated neurotoxicity syndrome [Unknown]
  - Cytokine release syndrome [Unknown]
  - Encephalopathy [Unknown]
  - Hemiparesis [Unknown]
  - Cerebrovascular accident [Unknown]
  - Fatigue [Unknown]
  - Chills [Unknown]
  - Tachycardia [Unknown]
  - Somnolence [Unknown]
  - Confusional state [Unknown]
  - Memory impairment [Unknown]
  - Agitation [Unknown]
  - Dysphagia [Unknown]
  - Incontinence [Unknown]
  - Tremor [Unknown]
  - Muscular weakness [Unknown]
  - Motor dysfunction [Unknown]
  - Aphasia [Unknown]

NARRATIVE: CASE EVENT DATE: 20211223
